FAERS Safety Report 24986288 (Version 1)
Quarter: 2025Q1

REPORT INFORMATION
  Report Type: Spontaneous
  Country: US (occurrence: US)
  Receive Date: 20250219
  Receipt Date: 20250219
  Transmission Date: 20250408
  Serious: Yes (Death)
  Sender: ENDO
  Company Number: US-ENDO USA, INC.-2025-000351

PATIENT
  Age: 58 Year
  Sex: Male

DRUGS (4)
  1. IBUPROFEN [Suspect]
     Active Substance: IBUPROFEN
     Indication: Product used for unknown indication
     Route: 048
  2. DIETHYLENE GLYCOL [Suspect]
     Active Substance: DIETHYLENE GLYCOL
     Indication: Product used for unknown indication
     Route: 048
  3. ETHANOL BASED HAND SANITIZER [Suspect]
     Active Substance: ALCOHOL
     Indication: Product used for unknown indication
     Route: 048
  4. ALCOHOL [Suspect]
     Active Substance: ALCOHOL
     Indication: Product used for unknown indication
     Route: 048

REACTIONS (1)
  - Intentional product misuse [Fatal]

NARRATIVE: CASE EVENT DATE: 20230101
